FAERS Safety Report 26126436 (Version 1)
Quarter: 2025Q4

REPORT INFORMATION
  Report Type: Spontaneous
  Country: US (occurrence: US)
  Receive Date: 20251205
  Receipt Date: 20251205
  Transmission Date: 20260118
  Serious: No
  Sender: INCYTE
  Company Number: US-EVENT-005072

PATIENT

DRUGS (1)
  1. OPZELURA [Suspect]
     Active Substance: RUXOLITINIB PHOSPHATE
     Indication: Vitiligo
     Dosage: UNK, APPLY TWICE A DAY TO FEET

REACTIONS (3)
  - Vitiligo [Unknown]
  - Application site discolouration [Unknown]
  - Application site pruritus [Unknown]
